FAERS Safety Report 5661180-3 (Version None)
Quarter: 2008Q1

REPORT INFORMATION
  Report Type: 
  Country: None (occurrence: None)
  Receive Date: 20080312
  Receipt Date: 20080312
  Transmission Date: 20080703
  Serious: Yes (Life-Threatening, Hospitalization)
  Sender: FDA-Public Use
  Company Number: None

PATIENT
  Age: 61 Year
  Sex: Female
  Weight: 124.7392 kg

DRUGS (1)
  1. HEPARIN [Suspect]
     Indication: PALPITATIONS
     Dates: start: 20071219, end: 20071221

REACTIONS (1)
  - HYPERSENSITIVITY [None]
